FAERS Safety Report 17599028 (Version 2)
Quarter: 2020Q1

REPORT INFORMATION
  Report Type: Spontaneous
  Country: US (occurrence: US)
  Receive Date: 20200330
  Receipt Date: 20200330
  Transmission Date: 20200409
  Serious: Yes (Other)
  Sender: FDA-Public Use
  Company Number: US-GLAXOSMITHKLINE-US2020AMR054921

PATIENT
  Sex: Female
  Weight: 83 kg

DRUGS (5)
  1. NICOTINE UNKNOWN BRAND [Suspect]
     Active Substance: NICOTINE
     Dosage: 14 MG, WEEKS 5-6
     Route: 062
  2. NICOTINE UNKNOWN BRAND [Suspect]
     Active Substance: NICOTINE
     Indication: SMOKING CESSATION THERAPY
     Dosage: 21 MG, WEEKS 1-4
     Route: 062
  3. NICOTINE UNKNOWN BRAND [Suspect]
     Active Substance: NICOTINE
     Dosage: 7 MG, WEEKS 7-8
     Route: 062
  4. NICOTINE UNKNOWN BRAND [Suspect]
     Active Substance: NICOTINE
     Dosage: 7 MG, WEEKS 7-8
     Route: 062
  5. WELLBUTRIN [Suspect]
     Active Substance: BUPROPION HYDROCHLORIDE
     Indication: SMOKING CESSATION THERAPY
     Dosage: 1 DF, QD
     Route: 048

REACTIONS (8)
  - Product use in unapproved indication [Unknown]
  - Drug ineffective for unapproved indication [Unknown]
  - Major depression [Unknown]
  - Drug ineffective [Unknown]
  - Stress [Unknown]
  - Anxiety [Unknown]
  - Sciatica [Unknown]
  - Intervertebral disc protrusion [Unknown]
